FAERS Safety Report 10076569 (Version 1)
Quarter: 2014Q2

REPORT INFORMATION
  Report Type: Spontaneous
  Country: US (occurrence: None)
  Receive Date: 20140411
  Receipt Date: 20140411
  Transmission Date: 20141212
  Serious: No
  Sender: FDA-Public Use
  Company Number: None

PATIENT
  Age: 57 Year
  Sex: Female
  Weight: 86.18 kg

DRUGS (1)
  1. PAROXETINE [Suspect]
     Indication: FIBROMYALGIA
     Route: 048
     Dates: start: 20140117, end: 20140407

REACTIONS (5)
  - Vomiting [None]
  - Diarrhoea [None]
  - Product physical issue [None]
  - Product contamination physical [None]
  - Product colour issue [None]
